FAERS Safety Report 6645994-9 (Version None)
Quarter: 2010Q1

REPORT INFORMATION
  Report Type: 
  Country: None (occurrence: None)
  Receive Date: 20100323
  Receipt Date: 20100311
  Transmission Date: 20100710
  Serious: Yes (Hospitalization)
  Sender: FDA-Public Use
  Company Number: GR-PFIZER INC-2010019887

PATIENT
  Age: 64 Year
  Sex: Male
  Weight: 68 kg

DRUGS (17)
  1. BLINDED *NO SUBJECT DRUG [Suspect]
     Indication: CARDIAC FAILURE CHRONIC
     Dosage: UNK
     Route: 048
     Dates: start: 20080626
  2. BLINDED *PLACEBO [Suspect]
     Indication: CARDIAC FAILURE CHRONIC
     Dosage: UNK
     Route: 048
     Dates: start: 20080626
  3. EPLERENONE [Suspect]
     Indication: CARDIAC FAILURE CHRONIC
     Dosage: UNK
     Route: 048
     Dates: start: 20080626
  4. LIPITOR [Concomitant]
     Dosage: UNK
     Route: 048
     Dates: start: 20090916
  5. DILTIAZEM HCL [Concomitant]
     Dosage: UNK
     Route: 048
     Dates: start: 20090710, end: 20091118
  6. ANGORON [Concomitant]
     Dosage: UNK
     Route: 048
     Dates: start: 20080805
  7. MONOSORDIL [Concomitant]
     Dosage: UNK
     Route: 048
     Dates: start: 20080507
  8. RENITEC [Concomitant]
     Dosage: UNK
     Route: 048
     Dates: start: 20090306
  9. LASIX [Concomitant]
     Dosage: UNK
     Route: 048
     Dates: start: 20090501
  10. OMEPRAZOLE [Concomitant]
     Dosage: UNK
     Route: 048
     Dates: start: 20090305
  11. SALOSPIR [Concomitant]
     Dosage: UNK
     Route: 048
     Dates: start: 19911107
  12. TARDYFERON [Concomitant]
     Dosage: UNK
     Route: 048
     Dates: start: 20090923
  13. NOVOMIX [Concomitant]
     Dosage: UNK
     Route: 058
     Dates: start: 20081104
  14. PROTAPHAN [Concomitant]
     Dosage: UNK
     Route: 058
     Dates: start: 20080724
  15. ADALAT [Concomitant]
     Dosage: UNK
     Route: 048
     Dates: start: 20090422, end: 20091201
  16. ALLOPURINOL [Concomitant]
     Dosage: UNK
     Route: 048
     Dates: start: 20080223
  17. SINTROM [Concomitant]
     Dosage: UNK
     Route: 048
     Dates: start: 20020814, end: 20091201

REACTIONS (3)
  - CARDIAC FAILURE [None]
  - CONDITION AGGRAVATED [None]
  - RENAL IMPAIRMENT [None]
